FAERS Safety Report 18532436 (Version 1)
Quarter: 2020Q4

REPORT INFORMATION
  Report Type: Spontaneous
  Country: DE (occurrence: DE)
  Receive Date: 20201123
  Receipt Date: 20201123
  Transmission Date: 20210114
  Serious: Yes (Hospitalization, Other)
  Sender: FDA-Public Use
  Company Number: DE-TEVA-2020-DE-1850291

PATIENT
  Age: 95 Year
  Sex: Male
  Weight: 69 kg

DRUGS (6)
  1. ACETYLSALICYLSAURE [Suspect]
     Active Substance: ASPIRIN
     Dosage: 100 MILLIGRAM DAILY; 100 MG, 1-0-0-0
     Route: 048
  2. ATORVASTATIN [Concomitant]
     Active Substance: ATORVASTATIN
     Dosage: 20 MILLIGRAM DAILY; 1-0-0-0
     Route: 048
  3. RAMIPRIL. [Concomitant]
     Active Substance: RAMIPRIL
     Dosage: 5 MILLIGRAM DAILY; 1-0-0-0
     Route: 048
  4. DUODART 0.5MG / 0.4MG HARD CAPSULES [Concomitant]
     Dosage: 1 DOSAGE FORMS DAILY; 0.5|0.4 MG, 1-0-0-0
     Route: 048
  5. LERCANIDIPIN [Concomitant]
     Active Substance: LERCANIDIPINE
     Dosage: 10 MILLIGRAM DAILY;  1-0-0-0
     Route: 048
  6. IBUPROFEN. [Suspect]
     Active Substance: IBUPROFEN
     Indication: BURSITIS
     Dosage: NK MG / DAY, 5X
     Route: 048

REACTIONS (5)
  - Condition aggravated [Unknown]
  - Haematochezia [Unknown]
  - General physical health deterioration [Unknown]
  - Anaemia [Unknown]
  - Pallor [Unknown]
